FAERS Safety Report 5125857-0 (Version None)
Quarter: 2006Q4

REPORT INFORMATION
  Report Type: 
  Country: None (occurrence: None)
  Receive Date: 20061012
  Receipt Date: 20061011
  Transmission Date: 20070319
  Serious: Yes (Other)
  Sender: FDA-Public Use
  Company Number: 200615090EU

PATIENT
  Age: 66 Year
  Sex: Male

DRUGS (11)
  1. NICODERM [Suspect]
     Dosage: 21MG PER DAY
     Route: 062
  2. METOPROLOL TARTRATE [Concomitant]
     Indication: HYPERTENSION
     Dates: start: 20050101
  3. ATORVASTATIN CALCIUM [Concomitant]
     Route: 048
  4. RAMIPRIL [Concomitant]
     Indication: RENAL DISORDER
     Route: 048
  5. GLYBURIDE [Concomitant]
     Route: 048
     Dates: start: 20010101
  6. OXYBUTYNIN [Concomitant]
     Indication: BLADDER DISORDER
     Dates: start: 20060501
  7. VALSARTAN [Concomitant]
     Indication: HYPERTENSION
     Route: 048
     Dates: start: 20030101
  8. PIOGLITAZONE HCL [Concomitant]
     Route: 048
     Dates: start: 20010101
  9. PROPRANOLOL HYDROCHLORIDE [Concomitant]
     Route: 048
     Dates: start: 20050101
  10. WARFARIN SODIUM [Concomitant]
     Indication: ANTICOAGULANT THERAPY
     Route: 048
     Dates: start: 20050101
  11. METFORMIN HCL [Concomitant]
     Route: 048
     Dates: start: 20010101

REACTIONS (1)
  - CEREBROVASCULAR ACCIDENT [None]
